FAERS Safety Report 12615833 (Version 1)
Quarter: 2016Q3

REPORT INFORMATION
  Report Type: Spontaneous
  Country: US (occurrence: US)
  Receive Date: 20160802
  Receipt Date: 20160802
  Transmission Date: 20161109
  Serious: No
  Sender: FDA-Public Use
  Company Number: US-BAYER-2016-145485

PATIENT
  Sex: Female

DRUGS (1)
  1. CLIMARA PRO [Suspect]
     Active Substance: ESTRADIOL\LEVONORGESTREL
     Indication: HORMONE REPLACEMENT THERAPY
     Route: 062

REACTIONS (6)
  - Product adhesion issue [None]
  - Confusional state [None]
  - Mood altered [None]
  - Hormone level abnormal [None]
  - Application site pruritus [None]
  - Mood swings [None]
